FAERS Safety Report 12466717 (Version 1)
Quarter: 2016Q2

REPORT INFORMATION
  Report Type: Spontaneous
  Country: RO (occurrence: RO)
  Receive Date: 20160615
  Receipt Date: 20160615
  Transmission Date: 20160815
  Serious: Yes (Life-Threatening)
  Sender: FDA-Public Use
  Company Number: RO-ACCORD-041479

PATIENT
  Age: 60 Year
  Sex: Male

DRUGS (5)
  1. TRAMADOL. [Concomitant]
     Active Substance: TRAMADOL
     Indication: PAIN
     Route: 042
     Dates: start: 20160523
  2. RANITIDINE. [Concomitant]
     Active Substance: RANITIDINE
     Indication: PREMEDICATION
     Route: 042
     Dates: start: 20160525, end: 20160525
  3. CISPLATIN ACCORD [Suspect]
     Active Substance: CISPLATIN
     Indication: NASOPHARYNGEAL CANCER
     Route: 042
     Dates: start: 20160525, end: 20160525
  4. DEXAMETHASONE. [Concomitant]
     Active Substance: DEXAMETHASONE
     Indication: PREMEDICATION
     Route: 042
     Dates: start: 20160525, end: 20160525
  5. PALONOSETRON/PALONOSETRON HYDROCHLORIDE [Concomitant]
     Indication: PREMEDICATION
     Route: 042
     Dates: start: 20160525, end: 20160525

REACTIONS (1)
  - Shock [Recovered/Resolved]

NARRATIVE: CASE EVENT DATE: 20160525
